FAERS Safety Report 4737858-2 (Version None)
Quarter: 2005Q3

REPORT INFORMATION
  Report Type: 
  Country: None (occurrence: None)
  Receive Date: 20050809
  Receipt Date: 20050801
  Transmission Date: 20060218
  Serious: Yes (Disabling)
  Sender: FDA-Public Use
  Company Number: PHFR2005GB02617

PATIENT
  Age: 44 Year
  Sex: Male

DRUGS (1)
  1. TERBINAFINE [Suspect]
     Indication: ONYCHOMYCOSIS
     Dosage: 25MG/DAY
     Route: 048
     Dates: start: 20050606, end: 20050612

REACTIONS (1)
  - PANIC ATTACK [None]
